FAERS Safety Report 4538755-8 (Version None)
Quarter: 2004Q4

REPORT INFORMATION
  Report Type: 
  Country: None (occurrence: None)
  Receive Date: 20041222
  Receipt Date: 20041210
  Transmission Date: 20050328
  Serious: Yes (Other)
  Sender: FDA-Public Use
  Company Number: S04-USA-07325-01

PATIENT
  Age: 53 Year
  Sex: Male
  Weight: 83.0083 kg

DRUGS (1)
  1. CELEXA [Suspect]
     Indication: DEPRESSION
     Dosage: 20 MG BID PO
     Route: 048
     Dates: start: 20020101

REACTIONS (4)
  - GASTRODUODENITIS [None]
  - IRON DEFICIENCY ANAEMIA [None]
  - OESOPHAGEAL ULCER [None]
  - REFLUX OESOPHAGITIS [None]
